FAERS Safety Report 24745057 (Version 1)
Quarter: 2024Q4

REPORT INFORMATION
  Report Type: Spontaneous
  Country: IT (occurrence: IT)
  Receive Date: 20241217
  Receipt Date: 20241217
  Transmission Date: 20250114
  Serious: Yes (Death, Hospitalization, Other)
  Sender: BRISTOL-MYERS SQUIBB COMPANY
  Company Number: None

PATIENT
  Age: 60 Year
  Sex: Male
  Weight: 77 kg

DRUGS (1)
  1. OPDIVO [Suspect]
     Active Substance: NIVOLUMAB
     Indication: Lung carcinoma cell type unspecified stage IV
     Dosage: 240 MG EVERY 14 DAYS; ESGEUOTA 1 ADMINISTRATION ONLY
     Route: 042
     Dates: start: 20240830, end: 20240830

REACTIONS (5)
  - Acute respiratory failure [Fatal]
  - Cardiac failure [Fatal]
  - Atrial fibrillation [Fatal]
  - Malignant neoplasm progression [Fatal]
  - Pneumonia [Fatal]

NARRATIVE: CASE EVENT DATE: 20240901
